FAERS Safety Report 8463548-9 (Version None)
Quarter: 2012Q2

REPORT INFORMATION
  Report Type: 
  Country: None (occurrence: None)
  Receive Date: 20120625
  Receipt Date: 20120615
  Transmission Date: 20120825
  Serious: Yes (Other)
  Sender: FDA-Public Use
  Company Number: GB-JNJFOC-20120611130

PATIENT
  Age: 73 Year
  Sex: Male
  Weight: 110 kg

DRUGS (7)
  1. XARELTO [Suspect]
     Indication: ATRIAL FIBRILLATION
     Route: 065
     Dates: start: 20120229, end: 20120409
  2. TAMSULOSIN HYDROCHLORIDE [Concomitant]
     Dates: start: 20120312, end: 20120507
  3. XARELTO [Suspect]
     Indication: CEREBROVASCULAR ACCIDENT PROPHYLAXIS
     Route: 065
     Dates: start: 20120229, end: 20120409
  4. FINASTERIDE [Concomitant]
     Dates: start: 20120312, end: 20120507
  5. LISINOPRIL [Concomitant]
     Dates: start: 20120312, end: 20120507
  6. ATORVASTATIN CALCIUM [Concomitant]
     Dates: start: 20120312, end: 20120409
  7. DIGOXIN [Concomitant]
     Dates: start: 20120312, end: 20120507

REACTIONS (2)
  - ARTHRALGIA [None]
  - HEAT RASH [None]
